FAERS Safety Report 4978920-9 (Version None)
Quarter: 2006Q2

REPORT INFORMATION
  Report Type: 
  Country: None (occurrence: None)
  Receive Date: 20060421
  Receipt Date: 20060410
  Transmission Date: 20061013
  Serious: Yes (Other)
  Sender: FDA-Public Use
  Company Number: PHEH2006US04705

PATIENT
  Age: 57 Year
  Sex: Male

DRUGS (2)
  1. TEGRETOL-XR [Suspect]
     Indication: CONVULSION
     Dosage: 400 MG, BID
     Dates: start: 19880101, end: 20060406
  2. TEGRETOL-XR [Suspect]
     Dosage: 100 MG, PRN
     Dates: start: 19980101, end: 20060406

REACTIONS (4)
  - CEREBROVASCULAR ACCIDENT [None]
  - HYPERHIDROSIS [None]
  - SYNCOPE [None]
  - TRANSIENT ISCHAEMIC ATTACK [None]
